FAERS Safety Report 8069641-7 (Version None)
Quarter: 2012Q1

REPORT INFORMATION
  Report Type: 
  Country: None (occurrence: None)
  Receive Date: 20120125
  Receipt Date: 20120116
  Transmission Date: 20120608
  Serious: Yes (Other)
  Sender: FDA-Public Use
  Company Number: US-JNJFOC-20080402420

PATIENT
  Sex: Male
  Weight: 57.8 kg

DRUGS (19)
  1. INFLIXIMAB [Suspect]
     Indication: CROHN'S DISEASE
     Route: 042
     Dates: start: 20061012
  2. MERCAPTOPURINE [Concomitant]
     Dates: start: 20060621, end: 20070301
  3. INFLIXIMAB [Suspect]
     Route: 042
     Dates: start: 20060802
  4. INFLIXIMAB [Suspect]
     Route: 042
     Dates: start: 20070723
  5. INFLIXIMAB [Suspect]
     Route: 042
     Dates: start: 20070803
  6. INFLIXIMAB [Suspect]
     Route: 042
     Dates: start: 20070921
  7. INFLIXIMAB [Suspect]
     Dosage: 12TH INFUSION SO FAR
     Route: 042
     Dates: start: 20061208
  8. MESALAMINE [Concomitant]
     Dosage: ROUTE: ORAL AND RECTAL
  9. ANTIBIOTICS [Concomitant]
  10. INFLIXIMAB [Suspect]
     Route: 042
     Dates: start: 20060914
  11. INFLIXIMAB [Suspect]
     Route: 042
     Dates: start: 20071110
  12. INFLIXIMAB [Suspect]
     Route: 042
     Dates: start: 20080102
  13. INFLIXIMAB [Suspect]
     Route: 042
     Dates: start: 20070330
  14. METHOTREXATE [Concomitant]
     Dates: start: 20070301, end: 20071116
  15. INFLIXIMAB [Suspect]
     Route: 042
     Dates: start: 20070201
  16. INFLIXIMAB [Suspect]
     Route: 042
     Dates: start: 20070601
  17. PROBIOTICS [Concomitant]
  18. CORTICOSTEROIDS [Concomitant]
  19. INFLIXIMAB [Suspect]
     Route: 042
     Dates: start: 20070102

REACTIONS (1)
  - MALIGNANT MELANOMA [None]
